FAERS Safety Report 5148659-8 (Version None)
Quarter: 2006Q4

REPORT INFORMATION
  Report Type: 
  Country: None (occurrence: None)
  Receive Date: 20061107
  Receipt Date: 20061030
  Transmission Date: 20070319
  Serious: Yes (Hospitalization)
  Sender: FDA-Public Use
  Company Number: 147756USA

PATIENT
  Age: 37 Year
  Sex: Female

DRUGS (5)
  1. CLOZAPINE [Suspect]
     Dosage: ORAL
     Route: 048
     Dates: start: 20031201
  2. TOPIRAMATE [Concomitant]
  3. RISPERIDONE [Concomitant]
  4. VENLAFAXIINE HCL [Concomitant]
  5. ESCITALOPRAM OXALATE [Concomitant]

REACTIONS (3)
  - APPENDICITIS PERFORATED [None]
  - CONSTIPATION [None]
  - SEPSIS [None]
